FAERS Safety Report 13044761 (Version 1)
Quarter: 2016Q4

REPORT INFORMATION
  Report Type: Spontaneous
  Country: US (occurrence: US)
  Receive Date: 20161220
  Receipt Date: 20161220
  Transmission Date: 20170207
  Serious: No
  Sender: FDA-Public Use
  Company Number: US-ROCHE-1052026

PATIENT
  Age: 47 Year
  Sex: Female

DRUGS (1)
  1. ZELBORAF [Suspect]
     Active Substance: VEMURAFENIB
     Indication: MALIGNANT MELANOMA
     Route: 048
     Dates: start: 20120316

REACTIONS (14)
  - Diarrhoea [Unknown]
  - Sunburn [Unknown]
  - Hyperkeratosis [Unknown]
  - Skin papilloma [Unknown]
  - Alopecia [Unknown]
  - Pain in extremity [Unknown]
  - Dysgeusia [Unknown]
  - Arthralgia [Unknown]
  - Melanocytic naevus [Unknown]
  - Acrochordon [Unknown]
  - Rash [Unknown]
  - Nausea [Unknown]
  - Oropharyngeal pain [Not Recovered/Not Resolved]
  - Fatigue [Unknown]

NARRATIVE: CASE EVENT DATE: 20120320
